FAERS Safety Report 13913160 (Version 1)
Quarter: 2017Q3

REPORT INFORMATION
  Report Type: Spontaneous
  Country: US (occurrence: US)
  Receive Date: 20170828
  Receipt Date: 20170828
  Transmission Date: 20171127
  Serious: No
  Sender: FDA-Public Use
  Company Number: US-ROCHE-1124128

PATIENT
  Age: 4 Year
  Sex: Male
  Weight: 16.36 kg

DRUGS (2)
  1. NUTROPIN AQ [Suspect]
     Active Substance: SOMATROPIN
     Indication: GROWTH HORMONE DEFICIENCY
     Dosage: 0.3MG/KG/WK, DOSE PER INJECTION: 0.14ML, INJECTIONS PER WEEK: DAILY
     Route: 058
     Dates: start: 19980701
  2. NUTROPIN AQ [Suspect]
     Active Substance: SOMATROPIN
     Dosage: DOSE INCREASED, DOSE STARTED IN MID JULY
     Route: 058

REACTIONS (2)
  - Insomnia [Unknown]
  - Gastrointestinal viral infection [Unknown]

NARRATIVE: CASE EVENT DATE: 19981022
